FAERS Safety Report 9170101 (Version 1)
Quarter: 2013Q1

REPORT INFORMATION
  Report Type: Spontaneous
  Country: US (occurrence: None)
  Receive Date: 20130308
  Receipt Date: 20130308
  Transmission Date: 20140127
  Serious: Yes (Hospitalization, Other)
  Sender: FDA-Public Use
  Company Number: ACO_34630_2013

PATIENT
  Age: 55 Year
  Sex: Female
  Weight: 59.9 kg

DRUGS (8)
  1. AMPYRA (DALFAMPRIDINE) TABLET, 10MG [Suspect]
     Indication: GAIT DISTURBANCE
     Route: 048
     Dates: start: 2012, end: 201211
  2. BACLOFEN (BACLOFEN) (BACLOFEN) [Concomitant]
  3. NEURONTIN (GABAPENTIN) [Concomitant]
  4. TIZANIDINE (TIZANIDINE HYDROCHLORIDE) [Concomitant]
  5. OMEPRAZOLE (OMEPRAZOLE) [Concomitant]
  6. PROZAC (FLUOXETINE HYDROCHLORIDE) [Concomitant]
  7. KLONOPIN (CLONAZEPAM) (TABLETS) [Concomitant]
  8. BENICAR HCT (HYDROCHLOROTHIAZIDE, OLMESARTAN MEDOXOMIL) [Concomitant]

REACTIONS (6)
  - Spinal fracture [None]
  - Concussion [None]
  - Loss of consciousness [None]
  - Fall [None]
  - Blood pressure decreased [None]
  - Back pain [None]
